FAERS Safety Report 5142970-2 (Version None)
Quarter: 2006Q4

REPORT INFORMATION
  Report Type: 
  Country: None (occurrence: None)
  Receive Date: 20061031
  Receipt Date: 20061031
  Transmission Date: 20070319
  Serious: No
  Sender: FDA-Public Use
  Company Number: None

PATIENT
  Sex: Male
  Weight: 83.4619 kg

DRUGS (2)
  1. METOPROLOL TARTRATE [Suspect]
     Dosage: 25 MG TID ORAL
     Route: 048
     Dates: start: 20030601, end: 20051201
  2. FLORINEF [Suspect]
     Dosage: 0.1 QD PO
     Route: 048
     Dates: start: 20060511

REACTIONS (1)
  - MEDICATION ERROR [None]
